FAERS Safety Report 14776703 (Version 1)
Quarter: 2018Q2

REPORT INFORMATION
  Report Type: Spontaneous
  Country: FR (occurrence: FR)
  Receive Date: 20180419
  Receipt Date: 20180419
  Transmission Date: 20180711
  Serious: Yes (Other)
  Sender: FDA-Public Use
  Company Number: FR-MERCK KGAA-2046004

PATIENT
  Age: 75 Year
  Sex: Female

DRUGS (1)
  1. NOVOTHYROX [Suspect]
     Active Substance: LEVOTHYROXINE SODIUM
     Indication: PRODUCT USED FOR UNKNOWN INDICATION

REACTIONS (21)
  - Arrhythmia [None]
  - Arthralgia [None]
  - Blood thyroid stimulating hormone increased [None]
  - Migraine [None]
  - Pain in extremity [None]
  - Social avoidant behaviour [None]
  - Aphonia [None]
  - Headache [None]
  - Crying [None]
  - Loss of personal independence in daily activities [None]
  - Alopecia [None]
  - Fatigue [None]
  - Malaise [None]
  - Body temperature fluctuation [None]
  - Anxiety [None]
  - Psychiatric symptom [None]
  - Mood altered [None]
  - Emotional distress [None]
  - Insomnia [None]
  - Persistent depressive disorder [None]
  - Night sweats [None]

NARRATIVE: CASE EVENT DATE: 20171114
